FAERS Safety Report 5562807-7 (Version None)
Quarter: 2007Q4

REPORT INFORMATION
  Report Type: 
  Country: None (occurrence: None)
  Receive Date: 20071217
  Receipt Date: 20071210
  Transmission Date: 20080405
  Serious: Yes (Life-Threatening)
  Sender: FDA-Public Use
  Company Number: JP-ASTRAZENECA-2007AP06548

PATIENT
  Age: 20166 Day
  Sex: Female
  Weight: 60 kg

DRUGS (16)
  1. IRESSA [Suspect]
     Indication: LUNG ADENOCARCINOMA STAGE III
     Route: 048
     Dates: start: 20070813, end: 20070904
  2. MAGMITT [Concomitant]
     Indication: CONSTIPATION
     Dates: start: 20070807
  3. ADOFEED [Concomitant]
     Indication: OEDEMA PERIPHERAL
     Dates: start: 20070819, end: 20070911
  4. GEMCITABINE [Concomitant]
     Route: 042
     Dates: start: 20070912
  5. CISPLATIN [Concomitant]
     Route: 042
     Dates: start: 20070912
  6. KYTRIL [Concomitant]
     Indication: NAUSEA
     Route: 042
     Dates: start: 20070912
  7. RINDERON [Concomitant]
     Indication: FATIGUE
     Dates: start: 20070912
  8. LASIX [Concomitant]
     Indication: POLYURIA
     Route: 042
     Dates: start: 20070912
  9. MANNITOL [Concomitant]
     Indication: POLYURIA
     Route: 042
     Dates: start: 20070912
  10. SELBEX [Concomitant]
     Indication: GASTRITIS PROPHYLAXIS
     Route: 048
     Dates: start: 20070913
  11. NOVAMIN [Concomitant]
     Indication: PROPHYLAXIS OF NAUSEA AND VOMITING
     Route: 048
     Dates: start: 20070913
  12. YODEL [Concomitant]
     Indication: CONSTIPATION PROPHYLAXIS
     Route: 048
     Dates: start: 20070914
  13. PRIMPERAN INJ [Concomitant]
     Indication: PROPHYLAXIS OF NAUSEA AND VOMITING
     Route: 048
     Dates: start: 20070914
  14. NASEA [Concomitant]
     Indication: NAUSEA
     Dates: start: 20070915
  15. PROCAINE HCL [Concomitant]
     Indication: THORACIC CAVITY DRAINAGE
     Dates: start: 20070921
  16. POLARAMINE [Concomitant]
     Indication: ALLERGY PROPHYLAXIS
     Route: 042
     Dates: start: 20070925

REACTIONS (1)
  - PULMONARY EMBOLISM [None]
